FAERS Safety Report 9153236 (Version 1)
Quarter: 2013Q1

REPORT INFORMATION
  Report Type: Spontaneous
  Country: US (occurrence: None)
  Receive Date: 20130304
  Receipt Date: 20130304
  Transmission Date: 20140127
  Serious: Yes (Hospitalization)
  Sender: FDA-Public Use
  Company Number: None

PATIENT
  Sex: Male
  Weight: 75.2 kg

DRUGS (6)
  1. CYTARABINE [Suspect]
  2. DAUNORUBICIN [Suspect]
  3. METHOTREXATE [Suspect]
  4. PEGASPARGASE [Suspect]
  5. PREDNISONE [Suspect]
  6. VINCRISTINE SULFATE [Suspect]

REACTIONS (2)
  - Tumour lysis syndrome [None]
  - Haemodialysis [None]
